FAERS Safety Report 23510093 (Version 1)
Quarter: 2024Q1

REPORT INFORMATION
  Report Type: Spontaneous
  Country: US (occurrence: None)
  Receive Date: 20240211
  Receipt Date: 20240211
  Transmission Date: 20240410
  Serious: No
  Sender: FDA-Public Use
  Company Number: 2024A024451

PATIENT
  Age: 27353 Day
  Sex: Male

DRUGS (2)
  1. BREZTRI [Suspect]
     Active Substance: BUDESONIDE\FORMOTEROL\GLYCOPYRROLATE
     Indication: COVID-19
     Route: 055
     Dates: start: 202312
  2. STIOLOTO RESPIMAT [Concomitant]

REACTIONS (4)
  - Hiccups [Recovered/Resolved]
  - Oral candidiasis [Recovered/Resolved]
  - Device use issue [Recovered/Resolved]
  - Intentional product use issue [Not Recovered/Not Resolved]

NARRATIVE: CASE EVENT DATE: 20231201
